FAERS Safety Report 9691520 (Version 1)
Quarter: 2013Q4

REPORT INFORMATION
  Report Type: Spontaneous
  Country: BR (occurrence: BR)
  Receive Date: 20131115
  Receipt Date: 20131115
  Transmission Date: 20140711
  Serious: Yes (Other)
  Sender: FDA-Public Use
  Company Number: BR-ABBVIE-13P-020-1169725-00

PATIENT
  Sex: Female

DRUGS (1)
  1. KLARICID PEDIATRICO [Suspect]
     Indication: PNEUMONIA MYCOPLASMAL

REACTIONS (2)
  - Pneumonia [Unknown]
  - Incorrect drug administration duration [Unknown]
